FAERS Safety Report 20490642 (Version 1)
Quarter: 2022Q1

REPORT INFORMATION
  Report Type: Spontaneous
  Country: US (occurrence: US)
  Receive Date: 20220218
  Receipt Date: 20220218
  Transmission Date: 20220423
  Serious: No
  Sender: FDA-Public Use
  Company Number: US-PFIZER INC-202200108232

PATIENT
  Age: 60 Year
  Sex: Female

DRUGS (1)
  1. BOSULIF [Suspect]
     Active Substance: BOSUTINIB MONOHYDRATE
     Dosage: 200 MG, 2X/DAY (TAKE 2 (100MG) TABLETS BY MOUTH TWICE A DAY)
     Route: 048

REACTIONS (2)
  - Vomiting [Unknown]
  - Fatigue [Not Recovered/Not Resolved]
